FAERS Safety Report 8390946-4 (Version None)
Quarter: 2012Q2

REPORT INFORMATION
  Report Type: 
  Country: None (occurrence: None)
  Receive Date: 20120529
  Receipt Date: 20120524
  Transmission Date: 20120825
  Serious: Yes (Death)
  Sender: FDA-Public Use
  Company Number: JP-JNJFOC-20120519523

PATIENT

DRUGS (4)
  1. PHOSPHORIC ACID [Suspect]
     Indication: COMPLETED SUICIDE
     Dosage: 28 %
     Route: 048
  2. POTASSIUM CHLORIDE [Suspect]
     Indication: COMPLETED SUICIDE
     Route: 048
  3. RISPERDAL [Suspect]
     Indication: PRODUCT USED FOR UNKNOWN INDICATION
     Dosage: 1 MG/ML
     Route: 048
  4. LIQUID NITROGEN [Suspect]
     Indication: COMPLETED SUICIDE
     Route: 048

REACTIONS (2)
  - COMPLETED SUICIDE [None]
  - OVERDOSE [None]
